FAERS Safety Report 8967977 (Version 1)
Quarter: 2012Q4

REPORT INFORMATION
  Report Type: 
  Country: CA (occurrence: CA)
  Receive Date: 20121218
  Receipt Date: 20121218
  Transmission Date: 20130627
  Serious: Yes (Other)
  Sender: FDA-Public Use
  Company Number: CA-B.I. PHARMACEUTICALS,INC./RIDGEFIELD-2012-CN-02524CN

PATIENT
  Age: 39 Year
  Sex: Female

DRUGS (1)
  1. PRADAX [Suspect]
     Indication: THROMBOSIS PROPHYLAXIS
     Dosage: 300 NR
     Route: 048
     Dates: start: 201201, end: 201210

REACTIONS (1)
  - Deep vein thrombosis [Unknown]
